FAERS Safety Report 10468381 (Version 2)
Quarter: 2014Q3

REPORT INFORMATION
  Report Type: Spontaneous
  Country: US (occurrence: US)
  Receive Date: 20140922
  Receipt Date: 20140922
  Transmission Date: 20150326
  Serious: No
  Sender: FDA-Public Use
  Company Number: US-ALLERGAN-1405999US

PATIENT
  Sex: Female
  Weight: 47 kg

DRUGS (2)
  1. LASTACAFT [Suspect]
     Active Substance: ALCAFTADINE
     Indication: DERMATITIS ALLERGIC
  2. LASTACAFT [Suspect]
     Active Substance: ALCAFTADINE
     Indication: CONJUNCTIVITIS ALLERGIC
     Dosage: UNK
     Route: 047
     Dates: start: 201311, end: 201403

REACTIONS (8)
  - Blepharitis allergic [Recovered/Resolved]
  - Blepharitis [Recovered/Resolved]
  - Eye discharge [Unknown]
  - Ocular hyperaemia [Unknown]
  - Eye irritation [Unknown]
  - Eyelid exfoliation [Recovered/Resolved]
  - Eye oedema [Unknown]
  - Erythema of eyelid [Recovered/Resolved]
